FAERS Safety Report 18730262 (Version 3)
Quarter: 2021Q1

REPORT INFORMATION
  Report Type: Spontaneous
  Country: AR (occurrence: AR)
  Receive Date: 20210112
  Receipt Date: 20210309
  Transmission Date: 20210419
  Serious: Yes (Hospitalization)
  Sender: FDA-Public Use
  Company Number: AR-NOVOPROD-778856

PATIENT
  Age: 17 Year
  Sex: Female
  Weight: 69 kg

DRUGS (2)
  1. INSULATARD FLEXPEN [Suspect]
     Active Substance: INSULIN HUMAN
     Indication: TYPE 1 DIABETES MELLITUS
     Dosage: 35 IU, QD
     Route: 065
  2. NOVORAPID [Suspect]
     Active Substance: INSULIN ASPART
     Indication: TYPE 1 DIABETES MELLITUS
     Dosage: 35 IU, QD
     Route: 065
     Dates: start: 20120415

REACTIONS (3)
  - Diabetic ketoacidosis [Recovered/Resolved]
  - Impaired gastric emptying [Unknown]
  - Diabetes mellitus inadequate control [Recovered/Resolved]
